FAERS Safety Report 8160234-X (Version None)
Quarter: 2012Q1

REPORT INFORMATION
  Report Type: 
  Country: None (occurrence: None)
  Receive Date: 20120223
  Receipt Date: 20120216
  Transmission Date: 20120608
  Serious: Yes (Other)
  Sender: FDA-Public Use
  Company Number: US-PURDUE-USA-2012-0082601

PATIENT
  Sex: Female

DRUGS (2)
  1. SENOKOT [Suspect]
     Indication: HAEMORRHOIDS
     Dosage: 2 TABLET, DAILY
     Dates: start: 20060101
  2. SYNTHROID [Concomitant]
     Indication: THYROID DISORDER
     Dosage: UNK, SEE TEXT
     Dates: start: 20120127

REACTIONS (3)
  - DRUG EFFECT DECREASED [None]
  - THYROID NEOPLASM [None]
  - CONSTIPATION [None]
